FAERS Safety Report 7584772-3 (Version None)
Quarter: 2011Q2

REPORT INFORMATION
  Report Type: 
  Country: None (occurrence: None)
  Receive Date: 20110630
  Receipt Date: 20110622
  Transmission Date: 20111010
  Serious: Yes (Other)
  Sender: FDA-Public Use
  Company Number: PHHY2011US55562

PATIENT
  Age: 58 Year
  Sex: Female

DRUGS (4)
  1. SANDOSTATIN LAR [Suspect]
     Dosage: 20 MG, QMO
  2. SANDOSTATIN LAR [Suspect]
     Dosage: 10 MG, QMO
     Dates: start: 20080707
  3. SANDOSTATIN [Suspect]
     Dosage: 50 UG/ML, QID
  4. SANDOSTATIN [Suspect]
     Dosage: 100 UG, UNK

REACTIONS (2)
  - GENERAL PHYSICAL HEALTH DETERIORATION [None]
  - PRODUCT QUALITY ISSUE [None]
